FAERS Safety Report 4673253-2 (Version None)
Quarter: 2005Q2

REPORT INFORMATION
  Report Type: 
  Country: None (occurrence: None)
  Receive Date: 20050525
  Receipt Date: 20050421
  Transmission Date: 20051028
  Serious: Yes (Hospitalization)
  Sender: FDA-Public Use
  Company Number: 200511246JP

PATIENT
  Age: 37 Year
  Sex: Female

DRUGS (2)
  1. FUROSEMIDE [Suspect]
  2. TORSEMIDE [Concomitant]

REACTIONS (2)
  - GOUTY TOPHUS [None]
  - PSEUDO-BARTTER SYNDROME [None]
